FAERS Safety Report 9842427 (Version 1)
Quarter: 2014Q1

REPORT INFORMATION
  Report Type: Spontaneous
  Country: KR (occurrence: KR)
  Receive Date: 20140124
  Receipt Date: 20140124
  Transmission Date: 20141002
  Serious: Yes (Other)
  Sender: FDA-Public Use
  Company Number: KR-NAPPMUNDI-GBR-2014-0016885

PATIENT
  Age: 41 Year
  Sex: Female

DRUGS (1)
  1. OXYCONTIN TABLET 20 MG [Suspect]
     Indication: PROCEDURAL PAIN
     Dosage: 20 MG, DAILY
     Route: 048
     Dates: start: 20120605, end: 20130316

REACTIONS (6)
  - Ileus [Unknown]
  - Metabolic syndrome [Unknown]
  - Renal disorder [Unknown]
  - Urethral stenosis [Recovered/Resolved]
  - Dyspnoea [Recovered/Resolved]
  - Syncope [Recovered/Resolved]
